FAERS Safety Report 14256829 (Version 3)
Quarter: 2018Q1

REPORT INFORMATION
  Report Type: Spontaneous
  Country: GB (occurrence: GB)
  Receive Date: 20171206
  Receipt Date: 20180320
  Transmission Date: 20180508
  Serious: Yes (Life-Threatening, Hospitalization, Other)
  Sender: FDA-Public Use
  Company Number: GB-SA-2017SA234372

PATIENT
  Age: 16 Year
  Sex: Male

DRUGS (12)
  1. IBUPROFEN. [Concomitant]
     Active Substance: IBUPROFEN
  2. CEFTRIAXONE. [Concomitant]
     Active Substance: CEFTRIAXONE
  3. RIFAMPICIN [Concomitant]
     Active Substance: RIFAMPIN
  4. FUROSEMIDE. [Concomitant]
     Active Substance: FUROSEMIDE
  5. SPIRONOLACTONE. [Concomitant]
     Active Substance: SPIRONOLACTONE
     Route: 065
  6. MEROPENEM. [Concomitant]
     Active Substance: MEROPENEM
  7. VANCOMYCIN [Concomitant]
     Active Substance: VANCOMYCIN
  8. TEMAZEPAM. [Concomitant]
     Active Substance: TEMAZEPAM
  9. PARACETAMOL [Concomitant]
     Active Substance: ACETAMINOPHEN
  10. GENTAMICIN. [Concomitant]
     Active Substance: GENTAMICIN
  11. RANITIDINE. [Suspect]
     Active Substance: RANITIDINE
     Dosage: RANITIDINE STARTED 3 WEEKS BEFORE THE ONSET OF ERUPTION. ALL MEDICATION WAS STOPPED 5 DAYS AFTER THE
     Route: 065
  12. ENOXAPARIN [Concomitant]
     Active Substance: ENOXAPARIN

REACTIONS (11)
  - Purpura [Recovered/Resolved]
  - Pyrexia [Recovered/Resolved]
  - Leukopenia [Recovered/Resolved]
  - Petechiae [Recovered/Resolved]
  - Face oedema [Recovered/Resolved]
  - Hepatic function abnormal [Recovered/Resolved]
  - Rash maculo-papular [Recovered/Resolved]
  - Mucous membrane disorder [Recovered/Resolved]
  - Lymphadenopathy [Recovered/Resolved]
  - Drug reaction with eosinophilia and systemic symptoms [Recovered/Resolved]
  - Eosinophilia [Recovered/Resolved]
